FAERS Safety Report 7312424-3 (Version None)
Quarter: 2011Q1

REPORT INFORMATION
  Report Type: 
  Country: None (occurrence: None)
  Receive Date: 20110224
  Receipt Date: 20110214
  Transmission Date: 20110831
  Serious: Yes (Death, Other)
  Sender: FDA-Public Use
  Company Number: US-PURDUE-USA-2011-0064116

PATIENT
  Age: 25 Year
  Sex: Female

DRUGS (4)
  1. HEPARIN [Suspect]
     Indication: PRODUCT USED FOR UNKNOWN INDICATION
  2. HEROIN [Suspect]
     Indication: DRUG ABUSE
  3. SUBOXONE [Suspect]
     Indication: DRUG ABUSE
  4. OXYCONTIN [Suspect]
     Indication: DRUG ABUSE

REACTIONS (5)
  - SUBSTANCE ABUSE [None]
  - PULMONARY HAEMORRHAGE [None]
  - ACTIVATED PARTIAL THROMBOPLASTIN TIME PROLONGED [None]
  - SUBARACHNOID HAEMORRHAGE [None]
  - CONVULSION [None]
